FAERS Safety Report 6025884-5 (Version None)
Quarter: 2008Q4

REPORT INFORMATION
  Report Type: 
  Country: None (occurrence: None)
  Receive Date: 20081223
  Receipt Date: 20081217
  Transmission Date: 20090506
  Serious: Yes (Other)
  Sender: FDA-Public Use
  Company Number: A0760981A

PATIENT
  Sex: Male

DRUGS (4)
  1. CAFFEINE (FORMULATION UNKNOWN) (CAFFEINE) [Suspect]
     Indication: INTENTIONAL OVERDOSE
     Dates: start: 20081206, end: 20081206
  2. NAPROXEN SODIUM [Suspect]
     Indication: INTENTIONAL OVERDOSE
     Dosage: 1 BOTTLE / SINGLE DOSE / ORAL
     Route: 048
     Dates: start: 20081206, end: 20081206
  3. ACETAMINOPHEN [Suspect]
     Indication: INTENTIONAL OVERDOSE
     Dates: start: 20081206, end: 20081206
  4. ETHANOL (FORMULATION UNKNOWN) (ALCOHOL) [Suspect]
     Indication: SUICIDE ATTEMPT
     Dosage: ORAL
     Route: 048

REACTIONS (3)
  - ABNORMAL BEHAVIOUR [None]
  - MULTIPLE DRUG OVERDOSE INTENTIONAL [None]
  - SUICIDE ATTEMPT [None]
